FAERS Safety Report 4921085-X (Version None)
Quarter: 2006Q1

REPORT INFORMATION
  Report Type: 
  Country: None (occurrence: None)
  Receive Date: 20060223
  Receipt Date: 20051017
  Transmission Date: 20060701
  Serious: Yes (Hospitalization)
  Sender: FDA-Public Use
  Company Number: US-MERCK-0510USA07656

PATIENT
  Age: 55 Year
  Sex: Female
  Weight: 68 kg

DRUGS (11)
  1. VIOXX [Suspect]
     Indication: AUTOIMMUNE DISORDER
     Route: 048
     Dates: start: 20021024, end: 20040930
  2. VIOXX [Suspect]
     Indication: SKIN LESION
     Route: 048
     Dates: start: 20021024, end: 20040930
  3. CLARITIN [Concomitant]
     Indication: HYPERSENSITIVITY
     Route: 065
  4. GUAIFENESIN [Concomitant]
     Indication: COUGH
     Route: 065
  5. MINOCYCLINE [Concomitant]
     Route: 065
  6. PREVACID [Concomitant]
     Indication: GASTROOESOPHAGEAL REFLUX DISEASE
     Route: 065
  7. PROTONIX [Concomitant]
     Indication: GASTROOESOPHAGEAL REFLUX DISEASE
     Route: 065
  8. LIDODERM [Concomitant]
     Route: 065
  9. ZITHROMAX [Concomitant]
     Route: 065
  10. PREDNISONE [Concomitant]
     Indication: PAIN
     Route: 065
  11. ARTHROTEC [Concomitant]
     Indication: PAIN
     Route: 065

REACTIONS (10)
  - ABDOMINAL PAIN [None]
  - ANXIETY DISORDER [None]
  - DEPRESSION [None]
  - FIBROMYALGIA [None]
  - MYOCARDIAL INFARCTION [None]
  - NAUSEA [None]
  - OEDEMA PERIPHERAL [None]
  - OESTROGEN DEFICIENCY [None]
  - PYODERMA [None]
  - VOMITING [None]
